FAERS Safety Report 4459953-8 (Version None)
Quarter: 2004Q3

REPORT INFORMATION
  Report Type: 
  Country: None (occurrence: None)
  Receive Date: 20040928
  Receipt Date: 20030912
  Transmission Date: 20050211
  Serious: No
  Sender: FDA-Public Use
  Company Number: US-GLAXOSMITHKLINE-A0425678A

PATIENT
  Age: 58 Year
  Sex: Female

DRUGS (2)
  1. SEREVENT [Suspect]
     Dosage: 1PUFF TWICE PER DAY
     Route: 055
     Dates: start: 20030905
  2. QVAR 40 [Concomitant]

REACTIONS (4)
  - CHEST DISCOMFORT [None]
  - GLOSSODYNIA [None]
  - ORAL MUCOSAL BLISTERING [None]
  - SWOLLEN TONGUE [None]
